FAERS Safety Report 5802203-8 (Version None)
Quarter: 2008Q3

REPORT INFORMATION
  Report Type: 
  Country: None (occurrence: None)
  Receive Date: 20080707
  Receipt Date: 20080625
  Transmission Date: 20090109
  Serious: Yes (Other)
  Sender: FDA-Public Use
  Company Number: GR-AVENTIS-200816276GDDC

PATIENT
  Sex: Female

DRUGS (1)
  1. LEFLUNOMIDE [Suspect]
     Indication: RHEUMATOID ARTHRITIS
     Dates: end: 20080625

REACTIONS (2)
  - ANAEMIA [None]
  - BLOOD CREATININE INCREASED [None]
